FAERS Safety Report 14620579 (Version 1)
Quarter: 2018Q1

REPORT INFORMATION
  Report Type: Spontaneous
  Country: AT (occurrence: AT)
  Receive Date: 20180309
  Receipt Date: 20180309
  Transmission Date: 20180509
  Serious: Yes (Hospitalization, Other)
  Sender: FDA-Public Use
  Company Number: AT-ELI_LILLY_AND_COMPANY-AT201709011540

PATIENT
  Age: 20 Year
  Sex: Male
  Weight: 82 kg

DRUGS (30)
  1. ZYPREXA [Suspect]
     Active Substance: OLANZAPINE
     Indication: PARANOIA
     Dosage: 5 MG, UNKNOWN
     Route: 048
     Dates: start: 20161124, end: 20161124
  2. NOZINAN                            /00038601/ [Suspect]
     Active Substance: LEVOMEPROMAZINE
     Dosage: 30 GTT, UNKNOWN
     Route: 048
     Dates: start: 20161202, end: 20161202
  3. TEMESTA                            /00273201/ [Concomitant]
     Active Substance: LORAZEPAM
     Indication: AGITATION
     Dosage: 10 MG, UNKNOWN
     Route: 065
     Dates: start: 20161208, end: 20161211
  4. ZYPREXA [Suspect]
     Active Substance: OLANZAPINE
     Dosage: 15 MG, UNKNOWN
     Route: 048
     Dates: start: 20161125, end: 20161205
  5. NOZINAN                            /00038601/ [Suspect]
     Active Substance: LEVOMEPROMAZINE
     Dosage: 70 GTT, UNKNOWN
     Route: 048
     Dates: start: 20161125, end: 20161125
  6. HALDOL [Suspect]
     Active Substance: HALOPERIDOL
     Indication: AGITATION
     Dosage: 50 MG, UNKNOWN
     Route: 048
     Dates: start: 20161121, end: 20161121
  7. HALDOL [Suspect]
     Active Substance: HALOPERIDOL
     Dosage: 20 MG, UNKNOWN
     Route: 048
     Dates: start: 20161123, end: 20161211
  8. OLANZAPINE. [Concomitant]
     Active Substance: OLANZAPINE
     Dosage: 15 MG, UNKNOWN
     Route: 048
     Dates: start: 20161125, end: 20161205
  9. HALDOL [Concomitant]
     Active Substance: HALOPERIDOL
     Dosage: 50 MG, UNKNOWN
     Route: 048
     Dates: start: 20161210, end: 20161210
  10. ZYPREXA [Suspect]
     Active Substance: OLANZAPINE
     Dosage: 5 MG, UNKNOWN
     Route: 048
     Dates: start: 20161206, end: 20161206
  11. NOZINAN                            /00038601/ [Suspect]
     Active Substance: LEVOMEPROMAZINE
     Indication: PRODUCT USED FOR UNKNOWN INDICATION
     Dosage: 130 GTT, UNKNOWN
     Route: 048
     Dates: start: 20161122, end: 20161122
  12. NOZINAN                            /00038601/ [Suspect]
     Active Substance: LEVOMEPROMAZINE
     Dosage: 40 GTT, UNKNOWN
     Route: 048
     Dates: start: 20161126, end: 20161127
  13. NOZINAN                            /00038601/ [Suspect]
     Active Substance: LEVOMEPROMAZINE
     Dosage: 40 GTT, UNKNOWN
     Route: 048
     Dates: start: 20161204, end: 20161204
  14. HOVA [Concomitant]
     Active Substance: HERBALS\HOPS\VALERIAN
     Dosage: 4 DF, UNKNOWN
     Route: 048
     Dates: start: 20161209, end: 20161209
  15. OLANZAPINE. [Concomitant]
     Active Substance: OLANZAPINE
     Indication: PRODUCT USED FOR UNKNOWN INDICATION
     Dosage: 5 MG, UNKNOWN
     Route: 048
     Dates: start: 20161124, end: 20161124
  16. ATARAX [Concomitant]
     Active Substance: HYDROXYZINE HYDROCHLORIDE
     Indication: PRODUCT USED FOR UNKNOWN INDICATION
     Dosage: 25 MG, UNKNOWN
     Route: 065
     Dates: start: 20161129, end: 20161129
  17. ATARAX [Concomitant]
     Active Substance: HYDROXYZINE HYDROCHLORIDE
     Dosage: 50 MG, UNKNOWN
     Route: 065
     Dates: start: 20161130, end: 20161130
  18. ATARAX [Concomitant]
     Active Substance: HYDROXYZINE HYDROCHLORIDE
     Dosage: 25 MG, UNKNOWN
     Route: 065
     Dates: start: 20161209, end: 20161209
  19. NOCTOR [Concomitant]
     Dosage: UNK, UNKNOWN
     Route: 065
     Dates: start: 20161208, end: 20161209
  20. NOZINAN                            /00038601/ [Suspect]
     Active Substance: LEVOMEPROMAZINE
     Dosage: 40 GTT, UNKNOWN
     Route: 048
     Dates: start: 20161124, end: 20161124
  21. NOZINAN                            /00038601/ [Suspect]
     Active Substance: LEVOMEPROMAZINE
     Dosage: 40 GTT, UNKNOWN
     Route: 048
     Dates: start: 20161206, end: 20161206
  22. MORPHIN                            /00036302/ [Suspect]
     Active Substance: MORPHINE SULFATE
     Indication: PRODUCT USED FOR UNKNOWN INDICATION
     Dosage: UNK UNK, UNKNOWN
     Route: 065
  23. HOVA [Concomitant]
     Active Substance: HERBALS\HOPS\VALERIAN
     Dosage: 2 DF, UNKNOWN
     Route: 048
     Dates: start: 20161124, end: 20161124
  24. NOCTOR [Concomitant]
     Dosage: UNK
     Route: 065
     Dates: start: 20161211, end: 20161211
  25. HALDOL [Concomitant]
     Active Substance: HALOPERIDOL
     Dosage: 40 MG, UNKNOWN
     Route: 048
     Dates: start: 20161211, end: 20161211
  26. HOVA [Concomitant]
     Active Substance: HERBALS\HOPS\VALERIAN
     Indication: PRODUCT USED FOR UNKNOWN INDICATION
     Dosage: 2 DF, UNKNOWN
     Route: 048
     Dates: start: 20161122, end: 20161122
  27. HALDOL [Concomitant]
     Active Substance: HALOPERIDOL
     Indication: PRODUCT USED FOR UNKNOWN INDICATION
     Dosage: 60 MG, UNKNOWN
     Route: 048
     Dates: start: 20161208, end: 20161208
  28. NOZINAN                            /00038601/ [Suspect]
     Active Substance: LEVOMEPROMAZINE
     Dosage: 50 GTT, UNKNOWN
     Route: 048
     Dates: start: 20161123, end: 20161123
  29. HOVA [Concomitant]
     Active Substance: HERBALS\HOPS\VALERIAN
     Dosage: 2 DF, UNKNOWN
     Route: 048
     Dates: start: 20161201, end: 20161205
  30. NOCTOR [Concomitant]
     Indication: PRODUCT USED FOR UNKNOWN INDICATION
     Dosage: UNK, UNKNOWN
     Route: 048
     Dates: start: 20161201, end: 20161206

REACTIONS (4)
  - Aspartate aminotransferase increased [Recovered/Resolved]
  - Alanine aminotransferase increased [Recovered/Resolved]
  - Psychotic symptom [Not Recovered/Not Resolved]
  - Wrong technique in product usage process [Unknown]

NARRATIVE: CASE EVENT DATE: 201612
